FAERS Safety Report 7726132-8 (Version None)
Quarter: 2011Q3

REPORT INFORMATION
  Report Type: 
  Country: None (occurrence: None)
  Receive Date: 20110902
  Receipt Date: 20110825
  Transmission Date: 20111222
  Serious: Yes (Hospitalization)
  Sender: FDA-Public Use
  Company Number: GXBR2011US04617

PATIENT
  Sex: Female

DRUGS (1)
  1. TRIAMTERENE/HCTZ TABLETS USP [Suspect]
     Dosage: 37.5MG TRIAMTERENE AND 25MG HYDROCHLOROTHIAZIDE

REACTIONS (2)
  - CEREBROVASCULAR ACCIDENT [None]
  - ECONOMIC PROBLEM [None]
